FAERS Safety Report 6545798-1 (Version None)
Quarter: 2010Q1

REPORT INFORMATION
  Report Type: 
  Country: None (occurrence: None)
  Receive Date: 20100121
  Receipt Date: 20100113
  Transmission Date: 20100710
  Serious: Yes (Hospitalization)
  Sender: FDA-Public Use
  Company Number: DE-ABBOTT-09P-062-0583229-00

PATIENT
  Sex: Male
  Weight: 55 kg

DRUGS (13)
  1. HUMIRA [Suspect]
     Indication: CROHN'S DISEASE
     Route: 058
     Dates: start: 20090101
  2. HUMIRA [Suspect]
     Route: 058
     Dates: end: 20090522
  3. ENTOCORT EC [Suspect]
     Indication: CROHN'S DISEASE
     Dosage: DAILY
  4. PREDNISOLONE [Suspect]
     Indication: CROHN'S DISEASE
     Dosage: DAILY
  5. INFUSIONS [Concomitant]
     Indication: DRUG USE FOR UNKNOWN INDICATION
  6. ANTIBIOTICS [Concomitant]
     Indication: DRUG USE FOR UNKNOWN INDICATION
  7. MESALAZINE [Concomitant]
     Indication: CROHN'S DISEASE
  8. ZN OROTAT [Concomitant]
     Indication: DRUG USE FOR UNKNOWN INDICATION
  9. TINCTURA OPII [Concomitant]
     Indication: PAIN
  10. ENOXAPARIN SODIUM [Concomitant]
     Indication: THROMBOSIS PROPHYLAXIS
     Route: 050
  11. LIQUIGEN [Concomitant]
     Indication: DRUG USE FOR UNKNOWN INDICATION
  12. CA++ [Concomitant]
     Indication: MINERAL SUPPLEMENTATION
  13. PERENTEROL [Concomitant]
     Indication: DRUG USE FOR UNKNOWN INDICATION
     Route: 048

REACTIONS (9)
  - C-REACTIVE PROTEIN INCREASED [None]
  - CHILLS [None]
  - DEVICE RELATED INFECTION [None]
  - LUNG ABSCESS [None]
  - PHARYNGITIS [None]
  - PNEUMONIA [None]
  - STAPHYLOCOCCAL INFECTION [None]
  - TINNITUS [None]
  - VENA CAVA THROMBOSIS [None]
